FAERS Safety Report 6219616-5 (Version None)
Quarter: 2009Q2

REPORT INFORMATION
  Report Type: 
  Country: None (occurrence: None)
  Receive Date: 20090609
  Receipt Date: 20090604
  Transmission Date: 20091009
  Serious: Yes (Death)
  Sender: FDA-Public Use
  Company Number: PHHY2009JP22427

PATIENT
  Sex: Female

DRUGS (3)
  1. DIOVAN T30230+TAB+HY [Suspect]
     Dosage: 160 MG
     Route: 048
     Dates: start: 20071109, end: 20080616
  2. ASPIRIN [Concomitant]
     Dosage: 100 MG
     Route: 048
     Dates: start: 20071109, end: 20080616
  3. TAKEPRON [Concomitant]
     Dosage: 15 MG
     Route: 048
     Dates: start: 20071109, end: 20080616

REACTIONS (1)
  - DEATH [None]
